FAERS Safety Report 4731861-4 (Version None)
Quarter: 2005Q3

REPORT INFORMATION
  Report Type: 
  Country: None (occurrence: None)
  Receive Date: 20050802
  Receipt Date: 20050802
  Transmission Date: 20060218
  Serious: Yes (Hospitalization)
  Sender: FDA-Public Use
  Company Number: None

PATIENT
  Age: 83 Year
  Sex: Male
  Weight: 52 kg

DRUGS (11)
  1. GLIPIZIDE [Suspect]
     Indication: DIABETES MELLITUS
     Dosage: 10 MG QD ORAL
     Route: 048
     Dates: start: 20010228, end: 20040916
  2. DARVOCET-N 100 [Concomitant]
  3. ATIVAN [Concomitant]
  4. VIT C [Concomitant]
  5. ASPIRIN [Concomitant]
  6. FOSINOPRIL SODIUM [Concomitant]
  7. MV [Concomitant]
  8. OMEPRAZOLE [Concomitant]
  9. SIMVASTATIN [Concomitant]
  10. TERAZOCIN [Concomitant]
  11. GATIFLOXACIN [Concomitant]

REACTIONS (6)
  - BLOOD GLUCOSE DECREASED [None]
  - BLOOD GLUCOSE FLUCTUATION [None]
  - HYPOTONIA [None]
  - PUPIL FIXED [None]
  - UNRESPONSIVE TO PAIN STIMULI [None]
  - UNRESPONSIVE TO VERBAL STIMULI [None]
